FAERS Safety Report 21599818 (Version 2)
Quarter: 2022Q4

REPORT INFORMATION
  Report Type: Report from Study
  Country: KR (occurrence: KR)
  Receive Date: 20221115
  Receipt Date: 20221125
  Transmission Date: 20230112
  Serious: Yes (Hospitalization)
  Sender: FDA-Public Use
  Company Number: KR-CELLTRION INC.-2022KR019000

PATIENT

DRUGS (9)
  1. INVESTIGATIONAL BIOSIMILARS [Suspect]
     Active Substance: INVESTIGATIONAL BIOSIMILARS
     Indication: Lung neoplasm malignant
     Dosage: 444 MG, QD
     Route: 042
     Dates: start: 20220715, end: 20221006
  2. INVESTIGATIONAL BIOSIMILARS [Suspect]
     Active Substance: INVESTIGATIONAL BIOSIMILARS
     Dosage: 444 MG, QD
     Route: 042
     Dates: start: 20220715, end: 20221006
  3. NERATINIB [Suspect]
     Active Substance: NERATINIB
     Indication: Lung neoplasm malignant
     Dosage: UNK
     Route: 048
     Dates: start: 20220715, end: 20221027
  4. ASPIRIN [Concomitant]
     Active Substance: ASPIRIN
     Indication: Cerebrovascular accident prophylaxis
     Dosage: 1 DF, QD
     Route: 048
     Dates: start: 20211019
  5. BISOPROLOL FUMARATE [Concomitant]
     Active Substance: BISOPROLOL FUMARATE
     Indication: Hypertension
     Dosage: 1 DF, QD
     Route: 048
     Dates: start: 20220628
  6. ATACAND [Concomitant]
     Active Substance: CANDESARTAN CILEXETIL
     Indication: Hypertension
     Dosage: 1 DF, QD
     Route: 048
     Dates: start: 20210604
  7. ATORVASTATIN CALCIUM\EZETIMIBE [Concomitant]
     Active Substance: ATORVASTATIN CALCIUM\EZETIMIBE
     Indication: Hypertension
     Dosage: 1 DF, QD
     Route: 048
     Dates: start: 20220720
  8. NAXEN-F [Concomitant]
     Indication: Musculoskeletal chest pain
     Dosage: 1 DF, PRN
     Route: 048
     Dates: start: 20220714
  9. ZEMAGIS [Concomitant]
     Indication: Palmar-plantar erythrodysaesthesia syndrome
     Dosage: UNK, PRN
     Dates: start: 20221006

REACTIONS (4)
  - Pleural effusion [Recovered/Resolved]
  - Dyspnoea [Recovered/Resolved]
  - Disease progression [Recovered/Resolved]
  - Off label use [Unknown]

NARRATIVE: CASE EVENT DATE: 20221107
